FAERS Safety Report 9537418 (Version 1)
Quarter: 2013Q3

REPORT INFORMATION
  Report Type: Spontaneous
  Country: US (occurrence: None)
  Receive Date: 20130918
  Receipt Date: 20130918
  Transmission Date: 20140515
  Serious: Yes (Other)
  Sender: FDA-Public Use
  Company Number: None

PATIENT
  Age: 64 Year
  Sex: Female
  Weight: 74.84 kg

DRUGS (2)
  1. BACITRACIN [Suspect]
     Dates: start: 20130824, end: 20130827
  2. BACITRACIN [Suspect]
     Indication: INFECTION PROPHYLAXIS
     Dates: start: 20130824, end: 20130827

REACTIONS (6)
  - Hypersensitivity [None]
  - Heart rate increased [None]
  - Stevens-Johnson syndrome [None]
  - Vertigo [None]
  - Inner ear disorder [None]
  - Gait disturbance [None]
